FAERS Safety Report 17614119 (Version 2)
Quarter: 2020Q2

REPORT INFORMATION
  Report Type: Spontaneous
  Country: US (occurrence: US)
  Receive Date: 20200402
  Receipt Date: 20200515
  Transmission Date: 20200713
  Serious: Yes (Hospitalization)
  Sender: FDA-Public Use
  Company Number: US-ELI_LILLY_AND_COMPANY-US202004000032

PATIENT
  Sex: Female

DRUGS (4)
  1. HUMALOG [Suspect]
     Active Substance: INSULIN LISPRO
     Dosage: 15 U, DAILY (BEFORE MEAL AND 2 UNITS FOR BLOOD SUGAR ABOVE 180 IN SLIDING SCALE)
     Route: 058
  2. HUMALOG [Suspect]
     Active Substance: INSULIN LISPRO
     Dosage: 17 U, PRN (15 UNITS BEFORE MEAL AND 2 UNITS FOR BLOOD SUGAR ABOVE 180 IN SLIDING SCALE)
     Route: 058
  3. HUMALOG [Suspect]
     Active Substance: INSULIN LISPRO
     Indication: DIABETES MELLITUS
     Dosage: 15 U, DAILY (BEFORE MEAL AND 2 UNITS FOR BLOOD SUGAR ABOVE 180 IN SLIDING SCALE)
     Route: 058
  4. LANTUS [Concomitant]
     Active Substance: INSULIN GLARGINE
     Indication: DIABETES MELLITUS
     Dosage: 45 U, EACH MORNING (IN AM)
     Route: 065

REACTIONS (3)
  - Blood glucose decreased [Recovering/Resolving]
  - Loss of consciousness [Recovered/Resolved]
  - Blood glucose increased [Unknown]
